FAERS Safety Report 23182733 (Version 1)
Quarter: 2023Q4

REPORT INFORMATION
  Report Type: Spontaneous
  Country: RU (occurrence: RU)
  Receive Date: 20231114
  Receipt Date: 20231114
  Transmission Date: 20240109
  Serious: Yes (Other)
  Sender: FDA-Public Use
  Company Number: RU-PFIZER INC-202300359256

PATIENT
  Age: 61 Year

DRUGS (3)
  1. BOSUTINIB [Suspect]
     Active Substance: BOSUTINIB
     Dosage: 500 MG, DAILY
     Dates: start: 20200218
  2. BOSUTINIB [Suspect]
     Active Substance: BOSUTINIB
     Dosage: 300 MG, DAILY
     Dates: start: 20200601
  3. BOSUTINIB [Suspect]
     Active Substance: BOSUTINIB
     Dosage: 300 MG, DAILY

REACTIONS (3)
  - Hydrothorax [Unknown]
  - Nausea [Unknown]
  - Diarrhoea [Unknown]

NARRATIVE: CASE EVENT DATE: 20200501
